FAERS Safety Report 16192158 (Version 3)
Quarter: 2020Q1

REPORT INFORMATION
  Report Type: Spontaneous
  Country: US (occurrence: US)
  Receive Date: 20190412
  Receipt Date: 20200114
  Transmission Date: 20200409
  Serious: No
  Sender: FDA-Public Use
  Company Number: US-STRONGBRIDGE BIOPHARMA-2019-STR-000082

PATIENT
  Age: 41 Year
  Sex: Male

DRUGS (2)
  1. KEVEYIS [Suspect]
     Active Substance: DICHLORPHENAMIDE
     Dosage: 25 MG, BID
     Route: 048
     Dates: start: 20180907
  2. KEVEYIS [Suspect]
     Active Substance: DICHLORPHENAMIDE
     Indication: FAMILIAL PERIODIC PARALYSIS
     Dosage: 25 MG, BID
     Route: 048
     Dates: start: 20180907

REACTIONS (11)
  - Disease recurrence [Recovering/Resolving]
  - Intentional product misuse [Not Recovered/Not Resolved]
  - Disease recurrence [Recovered/Resolved]
  - Pyrexia [Recovering/Resolving]
  - Nasal congestion [Recovering/Resolving]
  - Muscular weakness [Unknown]
  - Productive cough [Recovering/Resolving]
  - Fatigue [Recovering/Resolving]
  - Muscle twitching [Recovering/Resolving]
  - Influenza [Recovering/Resolving]
  - Muscle rigidity [Recovering/Resolving]

NARRATIVE: CASE EVENT DATE: 20190324
